FAERS Safety Report 25335458 (Version 2)
Quarter: 2025Q3

REPORT INFORMATION
  Report Type: Report from Study
  Country: CA (occurrence: CA)
  Receive Date: 20250520
  Receipt Date: 20250814
  Transmission Date: 20251021
  Serious: Yes (Death)
  Sender: ABBVIE
  Company Number: CA-ABBVIE-6289507

PATIENT
  Sex: Female
  Weight: 170 kg

DRUGS (1)
  1. SKYRIZI [Suspect]
     Active Substance: RISANKIZUMAB-RZAA
     Indication: Psoriasis
     Route: 058
     Dates: start: 20230616

REACTIONS (5)
  - Haemorrhage [Fatal]
  - Metabolic dysfunction-associated steatohepatitis [Unknown]
  - Hepatopulmonary syndrome [Unknown]
  - Hepatic encephalopathy [Unknown]
  - Infection [Unknown]
